FAERS Safety Report 24166824 (Version 1)
Quarter: 2024Q3

REPORT INFORMATION
  Report Type: Spontaneous
  Country: DE (occurrence: DE)
  Receive Date: 20240802
  Receipt Date: 20240802
  Transmission Date: 20241016
  Serious: Yes (Death)
  Sender: NOVARTIS
  Company Number: DE-002147023-NVSC2020DE142262

PATIENT
  Sex: Female

DRUGS (2)
  1. EVEROLIMUS [Suspect]
     Active Substance: EVEROLIMUS
     Indication: Breast cancer metastatic
     Dosage: 10 MG, QD
     Route: 048
     Dates: start: 201310, end: 201509
  2. EXEMESTANE [Suspect]
     Active Substance: EXEMESTANE
     Indication: Breast cancer metastatic
     Dosage: 25 MG, QD
     Route: 048
     Dates: start: 201310, end: 201509

REACTIONS (2)
  - Breast cancer metastatic [Fatal]
  - Malignant neoplasm progression [Fatal]
